FAERS Safety Report 23734890 (Version 1)
Quarter: 2024Q2

REPORT INFORMATION
  Report Type: Spontaneous
  Country: US (occurrence: US)
  Receive Date: 20240412
  Receipt Date: 20240412
  Transmission Date: 20240716
  Serious: No
  Sender: FDA-Public Use
  Company Number: US-TEVA-VS-3177087

PATIENT
  Age: 73 Year
  Sex: Female

DRUGS (3)
  1. ALBUTEROL SULFATE [Suspect]
     Active Substance: ALBUTEROL SULFATE
     Indication: Pneumonia
     Dosage: DOSAGE: 90 MCG 90 MCG/DOSE,1 PUFF EVERY 4 HOURS AS NEEDED FOR SHORTNESS OF BREATH
     Route: 055
  2. ALBUTEROL SULFATE [Suspect]
     Active Substance: ALBUTEROL SULFATE
     Indication: Influenza
  3. AZITHROMYCIN DIHYDRATE [Concomitant]
     Active Substance: AZITHROMYCIN DIHYDRATE
     Indication: Product used for unknown indication
     Route: 065

REACTIONS (5)
  - Tongue blistering [Not Recovered/Not Resolved]
  - Off label use [Not Recovered/Not Resolved]
  - Tongue discomfort [Not Recovered/Not Resolved]
  - Oral discomfort [Not Recovered/Not Resolved]
  - Injury [Not Recovered/Not Resolved]
